FAERS Safety Report 25450507 (Version 2)
Quarter: 2025Q3

REPORT INFORMATION
  Report Type: Report from Study
  Country: JP (occurrence: JP)
  Receive Date: 20250618
  Receipt Date: 20250711
  Transmission Date: 20251021
  Serious: Yes (Death, Other)
  Sender: ASTELLAS
  Company Number: JP-ASTELLAS-2025-AER-014350

PATIENT
  Age: 8 Decade
  Sex: Female

DRUGS (2)
  1. VYLOY [Suspect]
     Active Substance: ZOLBETUXIMAB-CLZB
     Indication: Gastric cancer
     Route: 042
     Dates: start: 20250205
  2. VYLOY [Suspect]
     Active Substance: ZOLBETUXIMAB-CLZB
     Route: 042
     Dates: start: 20250115, end: 20250115

REACTIONS (6)
  - Multiple organ dysfunction syndrome [Fatal]
  - Ascites [Unknown]
  - Gastritis [Unknown]
  - Blood albumin decreased [Unknown]
  - Cerebral infarction [Unknown]
  - Jaundice [Unknown]

NARRATIVE: CASE EVENT DATE: 20250311
